FAERS Safety Report 15434521 (Version 2)
Quarter: 2018Q4

REPORT INFORMATION
  Report Type: Spontaneous
  Country: GB (occurrence: GB)
  Receive Date: 20180927
  Receipt Date: 20181008
  Transmission Date: 20190204
  Serious: Yes (Death, Other)
  Sender: FDA-Public Use
  Company Number: GB-009507513-1809GBR012699

PATIENT
  Sex: Male

DRUGS (1)
  1. FINASTERIDE. [Suspect]
     Active Substance: FINASTERIDE
     Indication: ALOPECIA
     Dosage: UNK

REACTIONS (1)
  - Completed suicide [Fatal]
